FAERS Safety Report 25280174 (Version 1)
Quarter: 2025Q2

REPORT INFORMATION
  Report Type: Spontaneous
  Country: US (occurrence: US)
  Receive Date: 20250507
  Receipt Date: 20250507
  Transmission Date: 20250717
  Serious: Yes (Other)
  Sender: MALLINCKRODT
  Company Number: US-MALLINCKRODT-MNK202502514

PATIENT
  Age: 64 Year
  Sex: Female
  Weight: 73 kg

DRUGS (15)
  1. CORTICOTROPIN [Suspect]
     Active Substance: CORTICOTROPIN
     Indication: Sarcoidosis
     Dates: start: 20250123, end: 20250317
  2. PREDNISONE [Suspect]
     Active Substance: PREDNISONE
     Indication: Sarcoidosis
     Dates: start: 20250307, end: 202503
  3. CORTICOTROPIN [Concomitant]
     Active Substance: CORTICOTROPIN
     Route: 058
     Dates: start: 202408, end: 20250113
  4. CORTICOTROPIN [Concomitant]
     Active Substance: CORTICOTROPIN
     Dates: start: 20250320
  5. OXERVATE [CENEGERMIN BKBJ] [Concomitant]
     Dates: start: 20250113
  6. SYNTHROID [Concomitant]
     Active Substance: LEVOTHYROXINE SODIUM
  7. LAMICTAL [Concomitant]
     Active Substance: LAMOTRIGINE
  8. ATORVASTATIN [Concomitant]
     Active Substance: ATORVASTATIN
  9. METHOTREXATE [Concomitant]
     Active Substance: METHOTREXATE
  10. FOLIC ACID [Concomitant]
     Active Substance: FOLIC ACID
  11. VITAMIN D3 K2 [Concomitant]
  12. JUBLIA [Concomitant]
     Active Substance: EFINACONAZOLE
  13. ONE A DAY WOMEN^S 50+ COMPLETE MULTIVITAMIN [Concomitant]
  14. VITAMIN A ACETATE [Concomitant]
     Active Substance: VITAMIN A ACETATE
  15. FISH OIL [Concomitant]
     Active Substance: FISH OIL

REACTIONS (16)
  - Sarcoidosis [Not Recovered/Not Resolved]
  - Condition aggravated [Not Recovered/Not Resolved]
  - Carpal tunnel syndrome [Unknown]
  - Seizure [Unknown]
  - Memory impairment [Unknown]
  - Urinary incontinence [Unknown]
  - Dizziness [Unknown]
  - Muscle atrophy [Unknown]
  - Chest discomfort [Unknown]
  - Polydipsia [Unknown]
  - Brain fog [Unknown]
  - Gastrooesophageal reflux disease [Unknown]
  - Abdominal pain upper [Unknown]
  - Fatigue [Unknown]
  - Muscular weakness [Unknown]
  - Hyperhidrosis [Unknown]

NARRATIVE: CASE EVENT DATE: 20250130
